FAERS Safety Report 9728351 (Version 1)
Quarter: 2013Q4

REPORT INFORMATION
  Report Type: Spontaneous
  Country: US (occurrence: None)
  Receive Date: 20131203
  Receipt Date: 20131203
  Transmission Date: 20140711
  Serious: No
  Sender: FDA-Public Use
  Company Number: None

PATIENT
  Sex: Female
  Weight: 60.33 kg

DRUGS (1)
  1. FLEXORIL [Suspect]
     Indication: TEMPOROMANDIBULAR JOINT SYNDROME
     Dates: start: 201308

REACTIONS (1)
  - Nightmare [None]
